FAERS Safety Report 8934107 (Version 2)
Quarter: 2014Q4

REPORT INFORMATION
  Report Type: Spontaneous
  Country: US (occurrence: US)
  Receive Date: 20121129
  Receipt Date: 20141205
  Transmission Date: 20150529
  Serious: Yes (Hospitalization)
  Sender: FDA-Public Use
  Company Number: US-GLAXOSMITHKLINE-A0962711A

PATIENT
  Age: 46 Year
  Sex: Male

DRUGS (6)
  1. WELLBUTRIN SR [Suspect]
     Active Substance: BUPROPION HYDROCHLORIDE
     Indication: DEPRESSION
     Dosage: 150 MG, BID
     Route: 048
     Dates: start: 20100101
  2. SINGULAIR [Concomitant]
     Active Substance: MONTELUKAST SODIUM
  3. VITAMIN E [Concomitant]
     Active Substance: .ALPHA.-TOCOPHEROL
  4. CALCIUM + D [Concomitant]
     Active Substance: CALCIUM\VITAMIN D
  5. VITAMIN C [Concomitant]
     Active Substance: ASCORBIC ACID
  6. MULTIVITAMIN [Concomitant]
     Active Substance: VITAMINS

REACTIONS (5)
  - Ankle fracture [Unknown]
  - Oropharyngeal pain [Unknown]
  - Nasopharyngitis [Unknown]
  - Drug ineffective [Not Recovered/Not Resolved]
  - Wheelchair user [Unknown]

NARRATIVE: CASE EVENT DATE: 20120108
